FAERS Safety Report 17374375 (Version 2)
Quarter: 2020Q1

REPORT INFORMATION
  Report Type: Report from Study
  Country: CO (occurrence: CO)
  Receive Date: 20200205
  Receipt Date: 20200227
  Transmission Date: 20200409
  Serious: Yes (Death, Hospitalization)
  Sender: FDA-Public Use
  Company Number: CO-JNJFOC-20200107061

PATIENT
  Age: 70 Year
  Sex: Female
  Weight: 65 kg

DRUGS (3)
  1. SIMPONI [Suspect]
     Active Substance: GOLIMUMAB
     Route: 058
     Dates: end: 20190127
  2. SIMPONI [Suspect]
     Active Substance: GOLIMUMAB
     Route: 058
     Dates: start: 20190222, end: 20190323
  3. SIMPONI [Suspect]
     Active Substance: GOLIMUMAB
     Indication: RHEUMATOID ARTHRITIS
     Route: 058
     Dates: start: 20141203, end: 20170812

REACTIONS (5)
  - Anaemia [Not Recovered/Not Resolved]
  - White blood cell count decreased [Unknown]
  - Pneumonia [Not Recovered/Not Resolved]
  - Product dose omission [Unknown]
  - Death [Fatal]

NARRATIVE: CASE EVENT DATE: 20191230
